FAERS Safety Report 10242024 (Version 1)
Quarter: 2014Q2

REPORT INFORMATION
  Report Type: Spontaneous
  Country: US (occurrence: US)
  Receive Date: 20140617
  Receipt Date: 20140617
  Transmission Date: 20141212
  Serious: No
  Sender: FDA-Public Use
  Company Number: US-PFIZER INC-2014164012

PATIENT
  Age: 37 Year
  Sex: Female
  Weight: 54.42 kg

DRUGS (2)
  1. LYRICA [Suspect]
     Indication: MIGRAINE
     Dosage: 50 MG, 1X/DAY
     Route: 048
     Dates: start: 201401, end: 20140605
  2. LYRICA [Suspect]
     Indication: FACIAL NEURALGIA

REACTIONS (2)
  - Neuralgia [Not Recovered/Not Resolved]
  - Migraine [Unknown]
